FAERS Safety Report 9461177 (Version 1)
Quarter: 2013Q3

REPORT INFORMATION
  Report Type: Spontaneous
  Country: US (occurrence: None)
  Receive Date: 20130814
  Receipt Date: 20130814
  Transmission Date: 20140515
  Serious: No
  Sender: FDA-Public Use
  Company Number: None

PATIENT
  Age: 81 Year
  Sex: Female
  Weight: 52.62 kg

DRUGS (1)
  1. MIRTAZAPINE [Suspect]
     Indication: DEPRESSION
     Dosage: 1.5 MGM BEDTIME ORAL ?2X^S ONLY
     Route: 048
     Dates: start: 20130730, end: 20130731

REACTIONS (4)
  - Nightmare [None]
  - Headache [None]
  - Abdominal pain upper [None]
  - Sleep terror [None]
